FAERS Safety Report 16889732 (Version 2)
Quarter: 2019Q4

REPORT INFORMATION
  Report Type: Spontaneous
  Country: ES (occurrence: ES)
  Receive Date: 20191007
  Receipt Date: 20191031
  Transmission Date: 20200122
  Serious: Yes (Hospitalization, Other)
  Sender: FDA-Public Use
  Company Number: ES-PFIZER INC-2019427057

PATIENT
  Age: 81 Year
  Sex: Female

DRUGS (10)
  1. TACROLIMUS. [Suspect]
     Active Substance: TACROLIMUS
     Indication: CLOSTRIDIUM DIFFICILE INFECTION
     Dosage: UNK
  2. ZINPLAVA [Suspect]
     Active Substance: BEZLOTOXUMAB
     Indication: CLOSTRIDIUM DIFFICILE INFECTION
     Dosage: 700 MG, UNK
     Dates: start: 20190321
  3. FIDAXOMICIN [Suspect]
     Active Substance: FIDAXOMICIN
     Indication: CLOSTRIDIUM DIFFICILE INFECTION
     Dosage: UNK
     Dates: start: 201901
  4. SIROLIMUS. [Suspect]
     Active Substance: SIROLIMUS
     Dosage: UNK
  5. OMEPRAZOLE. [Suspect]
     Active Substance: OMEPRAZOLE
     Dosage: UNK
  6. VANCOMYCIN [Suspect]
     Active Substance: VANCOMYCIN
     Indication: CLOSTRIDIUM DIFFICILE INFECTION
     Dosage: UNK
     Dates: start: 20190321
  7. ERTAPENEM SODIUM [Suspect]
     Active Substance: ERTAPENEM SODIUM
     Indication: KLEBSIELLA INFECTION
     Dosage: UNK
     Dates: start: 20181225
  8. ERTAPENEM SODIUM [Suspect]
     Active Substance: ERTAPENEM SODIUM
     Indication: ESCHERICHIA INFECTION
  9. PREDNISONE. [Suspect]
     Active Substance: PREDNISONE
     Dosage: UNK
  10. ERTAPENEM SODIUM [Suspect]
     Active Substance: ERTAPENEM SODIUM
     Indication: RENAL GRAFT INFECTION
     Dosage: UNK
     Dates: start: 201903

REACTIONS (9)
  - Urinary tract infection pseudomonal [Unknown]
  - Adenovirus infection [Unknown]
  - Klebsiella infection [Unknown]
  - Escherichia infection [Unknown]
  - Clostridium test positive [Unknown]
  - Avian influenza [Unknown]
  - Pyrexia [Unknown]
  - Clostridium difficile infection [Unknown]
  - Renal graft infection [Unknown]

NARRATIVE: CASE EVENT DATE: 20181225
